FAERS Safety Report 4682584-1 (Version None)
Quarter: 2005Q2

REPORT INFORMATION
  Report Type: 
  Country: None (occurrence: None)
  Receive Date: 20050602
  Receipt Date: 20050413
  Transmission Date: 20051028
  Serious: No
  Sender: FDA-Public Use
  Company Number: USA050495662

PATIENT
  Sex: Male

DRUGS (5)
  1. CYMBALTA [Suspect]
     Indication: ANXIETY
     Dosage: 30 MG
     Dates: start: 20050406
  2. KLONOPIN [Concomitant]
  3. PAXIL CR [Concomitant]
  4. ZOLOFT [Concomitant]
  5. NORTIPRTYLINE [Concomitant]

REACTIONS (3)
  - DRUG INEFFECTIVE [None]
  - FEELING ABNORMAL [None]
  - FEELING JITTERY [None]
